FAERS Safety Report 4870097-3 (Version None)
Quarter: 2005Q4

REPORT INFORMATION
  Report Type: 
  Country: None (occurrence: None)
  Receive Date: 20051227
  Receipt Date: 20051215
  Transmission Date: 20060501
  Serious: No
  Sender: FDA-Public Use
  Company Number: TPA2005A01565

PATIENT
  Age: 83 Year
  Sex: Female
  Weight: 82.5547 kg

DRUGS (4)
  1. ACTOS [Suspect]
     Dosage: 30 MG, 1 IN 1 D, PER ORAL
     Route: 048
     Dates: end: 20030101
  2. HUMULIN 70/30 [Suspect]
     Indication: DIABETES MELLITUS
     Dosage: 25 UNITS QAM + 30 UNITS QHS, DAILY
     Dates: start: 20030101
  3. UNKNOWN INSULIN (INSULIN) [Suspect]
     Indication: DIABETES MELLITUS
  4. AMARYL [Concomitant]

REACTIONS (1)
  - DIABETES MELLITUS INADEQUATE CONTROL [None]
